FAERS Safety Report 7935375-X (Version None)
Quarter: 2011Q4

REPORT INFORMATION
  Report Type: 
  Country: None (occurrence: None)
  Receive Date: 20111122
  Receipt Date: 20111115
  Transmission Date: 20120403
  Serious: Yes (Hospitalization)
  Sender: FDA-Public Use
  Company Number: DE-B.I. PHARMACEUTICALS,INC./RIDGEFIELD-2011-DE-05899DE

PATIENT
  Sex: Female
  Weight: 60 kg

DRUGS (2)
  1. PRADAXA [Suspect]
     Indication: CEREBROVASCULAR ACCIDENT PROPHYLAXIS
  2. PRADAXA [Suspect]
     Indication: ATRIAL FIBRILLATION
     Dosage: 220 MG
     Route: 048
     Dates: start: 20110928, end: 20111019

REACTIONS (5)
  - COUGH [None]
  - EMPHYSEMA [None]
  - NASOPHARYNGITIS [None]
  - CONFUSIONAL STATE [None]
  - MALAISE [None]
